FAERS Safety Report 5876479-5 (Version None)
Quarter: 2008Q3

REPORT INFORMATION
  Report Type: 
  Country: None (occurrence: None)
  Receive Date: 20080908
  Receipt Date: 20080908
  Transmission Date: 20090109
  Serious: Yes (Hospitalization)
  Sender: FDA-Public Use
  Company Number: None

PATIENT
  Age: 18 Year
  Sex: Male
  Weight: 88.4514 kg

DRUGS (1)
  1. MEFLOQUINE [Suspect]
     Indication: MALARIA PROPHYLAXIS
     Dosage: 250MG WEEKLY PO
     Route: 048
     Dates: start: 20070522, end: 20080608

REACTIONS (4)
  - ABNORMAL BEHAVIOUR [None]
  - BELLIGERENCE [None]
  - PARANOIA [None]
  - PSYCHOTIC DISORDER [None]
